FAERS Safety Report 8927084 (Version 1)
Quarter: 2012Q4

REPORT INFORMATION
  Report Type: 
  Country: EE (occurrence: EE)
  Receive Date: 20121127
  Receipt Date: 20121127
  Transmission Date: 20130627
  Serious: Yes (Other)
  Sender: FDA-Public Use
  Company Number: EE-AMGEN-ESTSP2012072786

PATIENT
  Age: 49 Year
  Sex: Male
  Weight: 119 kg

DRUGS (2)
  1. ARANESP [Suspect]
     Indication: ANAEMIA
     Dosage: 200 mug, twice a month
     Dates: start: 2010
  2. IRON [Concomitant]

REACTIONS (3)
  - Therapeutic response decreased [Unknown]
  - Bronchitis bacterial [Unknown]
  - Pneumonia [Unknown]
